FAERS Safety Report 11137305 (Version 1)
Quarter: 2015Q2

REPORT INFORMATION
  Report Type: Report from Study
  Country: US (occurrence: US)
  Receive Date: 20150526
  Receipt Date: 20150526
  Transmission Date: 20150821
  Serious: Yes (Other)
  Sender: FDA-Public Use
  Company Number: US-BAXTER-2015BAX017179

PATIENT
  Sex: Female

DRUGS (1)
  1. GAMMAGARD LIQUID [Suspect]
     Active Substance: HUMAN IMMUNOGLOBULIN G
     Indication: IMMUNODEFICIENCY COMMON VARIABLE
     Route: 058

REACTIONS (7)
  - Gastrointestinal viral infection [Unknown]
  - Hypersensitivity [Unknown]
  - Environmental exposure [Unknown]
  - Drug intolerance [Unknown]
  - Insomnia [Unknown]
  - Viral upper respiratory tract infection [Unknown]
  - Nervous system disorder [Unknown]
